FAERS Safety Report 8395934-X (Version None)
Quarter: 2012Q2

REPORT INFORMATION
  Report Type: 
  Country: None (occurrence: None)
  Receive Date: 20120530
  Receipt Date: 20120528
  Transmission Date: 20120825
  Serious: Yes (Death)
  Sender: FDA-Public Use
  Company Number: PHHY2012CO045961

PATIENT
  Sex: Female

DRUGS (2)
  1. SANDIMMUNE [Suspect]
     Dosage: UNK
     Route: 048
     Dates: start: 20111227, end: 20120509
  2. TRIMETHOPRIM [Concomitant]

REACTIONS (1)
  - DEATH [None]
